FAERS Safety Report 9215107 (Version 1)
Quarter: 2013Q2

REPORT INFORMATION
  Report Type: Spontaneous
  Country: ES (occurrence: ES)
  Receive Date: 20130405
  Receipt Date: 20130405
  Transmission Date: 20140414
  Serious: Yes (Hospitalization, Other)
  Sender: FDA-Public Use
  Company Number: ES-VERTEX PHARMACEUTICALS INC.-2013-004539

PATIENT
  Sex: 0

DRUGS (10)
  1. INCIVO [Suspect]
     Indication: HEPATITIS C
     Route: 048
  2. RIBAVIRIN [Suspect]
     Indication: HEPATITIS C
     Dosage: DOSAGE FORM: CAPSULE
     Route: 048
  3. RIBAVIRIN [Suspect]
     Dosage: DOSAGE FORM: CAPSULE
     Route: 048
  4. PEGASYS [Suspect]
     Indication: HEPATITIS C
     Dosage: DOSAGE FORM: SOLUTION FOR INJECTION
     Route: 065
  5. PEGASYS [Suspect]
     Dosage: DOSAGE FORM: SOLUTION FOR INJECTION
     Route: 065
  6. AZATHIOPRINE [Concomitant]
     Indication: AUTOIMMUNE HEPATITIS
     Dosage: DOSAGE FORM: UNSPECIFIED
     Route: 065
  7. AZATHIOPRINE [Concomitant]
     Dosage: DOSAGE FORM: UNSPECIFIED
     Route: 065
  8. CYCLOSPORINE [Concomitant]
     Indication: PRODUCT USED FOR UNKNOWN INDICATION
     Dosage: DOSAGE FORM: UNSPECIFIED
     Route: 065
  9. CYCLOSPORINE [Concomitant]
     Dosage: DOSAGE FORM: UNSPECIFIED
     Route: 065
  10. PREDNISONE [Concomitant]
     Indication: AUTOIMMUNE HEPATITIS
     Dosage: DOSAGE FORM: UNSPECIFIED
     Route: 048

REACTIONS (5)
  - Pancytopenia [Unknown]
  - Rash maculo-papular [Unknown]
  - Anaemia [Unknown]
  - Pyrexia [Not Recovered/Not Resolved]
  - Off label use [Unknown]
